FAERS Safety Report 9595853 (Version 2)
Quarter: 2013Q4

REPORT INFORMATION
  Report Type: Spontaneous
  Country: US (occurrence: US)
  Receive Date: 20131004
  Receipt Date: 20131004
  Transmission Date: 20140711
  Serious: No
  Sender: FDA-Public Use
  Company Number: US-PURDUE-USA-2012-0090682

PATIENT
  Age: 72 Year
  Sex: Male

DRUGS (1)
  1. BUTRANS [Suspect]
     Indication: BACK PAIN
     Dosage: 5 MCG, UNK
     Route: 062
     Dates: start: 20120719, end: 20120719

REACTIONS (6)
  - Sinus congestion [Unknown]
  - Sinus disorder [Unknown]
  - Headache [Unknown]
  - Nausea [Unknown]
  - Application site pruritus [Unknown]
  - Dyspnoea [Unknown]
